FAERS Safety Report 5671200-8 (Version None)
Quarter: 2008Q1

REPORT INFORMATION
  Report Type: 
  Country: None (occurrence: None)
  Receive Date: 20080318
  Receipt Date: 20080307
  Transmission Date: 20080703
  Serious: Yes (Other)
  Sender: FDA-Public Use
  Company Number: US-ELI_LILLY_AND_COMPANY-US200803002264

PATIENT
  Sex: Female

DRUGS (2)
  1. STRATTERA [Suspect]
     Indication: ATTENTION DEFICIT/HYPERACTIVITY DISORDER
     Dosage: 25 MG, UNK
     Dates: start: 20080117, end: 20080201
  2. STRATTERA [Suspect]
     Dosage: 18 MG, UNK
     Dates: start: 20080206, end: 20080303

REACTIONS (2)
  - EMOTIONAL DISTRESS [None]
  - SUICIDAL IDEATION [None]
